FAERS Safety Report 11388351 (Version 1)
Quarter: 2015Q3

REPORT INFORMATION
  Report Type: Spontaneous
  Country: IT (occurrence: IT)
  Receive Date: 20150817
  Receipt Date: 20150817
  Transmission Date: 20151125
  Serious: Yes (Hospitalization, Other)
  Sender: FDA-Public Use
  Company Number: IT-ASTRAZENECA-2015SE78164

PATIENT
  Age: 29494 Day
  Sex: Male

DRUGS (6)
  1. SEROQUEL [Suspect]
     Active Substance: QUETIAPINE FUMARATE
     Dosage: 25 MG IN THE MORNING AND 75 MG IN THE EVENING
     Route: 048
     Dates: start: 20150519
  2. RIVOTRIL [Suspect]
     Active Substance: CLONAZEPAM
     Route: 048
  3. SEROQUEL [Suspect]
     Active Substance: QUETIAPINE FUMARATE
     Dosage: 50 MG IN THE MORNING AND 100 MG IN THE EVENING
     Route: 048
     Dates: end: 20150726
  4. LORAZEPAM. [Suspect]
     Active Substance: LORAZEPAM
     Route: 048
     Dates: start: 20150101, end: 20150727
  5. LORAZEPAM. [Suspect]
     Active Substance: LORAZEPAM
     Route: 048
  6. RIVOTRIL [Suspect]
     Active Substance: CLONAZEPAM
     Dosage: 2.5 MG/ ML ORAL DROPS SOLUTION, 8 GTT DAILY
     Route: 048
     Dates: start: 20150101, end: 20150726

REACTIONS (4)
  - Dehydration [Unknown]
  - Sopor [Recovering/Resolving]
  - Anuria [Unknown]
  - Hypotension [Unknown]

NARRATIVE: CASE EVENT DATE: 20150725
